FAERS Safety Report 9016342 (Version 2)
Quarter: 2013Q1

REPORT INFORMATION
  Report Type: Spontaneous
  Country: US (occurrence: US)
  Receive Date: 20130116
  Receipt Date: 20130124
  Transmission Date: 20140127
  Serious: Yes (Hospitalization, Other)
  Sender: FDA-Public Use
  Company Number: US-GILEAD-2013-0067876

PATIENT
  Sex: Female

DRUGS (2)
  1. LETAIRIS [Suspect]
     Indication: COR PULMONALE CHRONIC
     Dosage: 10 MG, UNK
     Route: 048
     Dates: start: 20070827
  2. REVATIO [Concomitant]
     Indication: COR PULMONALE CHRONIC
     Dosage: UNK

REACTIONS (3)
  - Pneumonia [Unknown]
  - Dehydration [Unknown]
  - Blood iron decreased [Unknown]
